FAERS Safety Report 8548549 (Version 3)
Quarter: 2015Q3

REPORT INFORMATION
  Report Type: Spontaneous
  Country: US (occurrence: US)
  Receive Date: 20120507
  Receipt Date: 20150810
  Transmission Date: 20151125
  Serious: Yes (Other)
  Sender: FDA-Public Use
  Company Number: PHEH2012US009369

PATIENT
  Age: 60 Year
  Sex: Male

DRUGS (10)
  1. TRAMADOL. [Concomitant]
     Active Substance: TRAMADOL
     Indication: PRODUCT USED FOR UNKNOWN INDICATION
     Dosage: UNK
     Route: 065
  2. ANTINAL [Concomitant]
     Indication: PRODUCT USED FOR UNKNOWN INDICATION
     Dosage: UNK
     Route: 065
  3. FLEXERIL [Concomitant]
     Active Substance: CYCLOBENZAPRINE HYDROCHLORIDE
     Indication: PRODUCT USED FOR UNKNOWN INDICATION
     Dosage: UNK
     Route: 065
  4. TRILIPIX [Concomitant]
     Active Substance: FENOFIBRIC ACID
     Indication: PRODUCT USED FOR UNKNOWN INDICATION
     Dosage: UNK
     Route: 065
  5. FISH OIL [Concomitant]
     Active Substance: FISH OIL
     Indication: PRODUCT USED FOR UNKNOWN INDICATION
     Dosage: UNK
     Route: 065
  6. WELLBUTRIN [Concomitant]
     Active Substance: BUPROPION HYDROCHLORIDE
     Indication: PRODUCT USED FOR UNKNOWN INDICATION
     Dosage: UNK
     Route: 065
  7. PRILOSEC [Concomitant]
     Active Substance: OMEPRAZOLE MAGNESIUM
     Indication: PRODUCT USED FOR UNKNOWN INDICATION
     Dosage: UNK
     Route: 065
  8. TEKTURNA [Suspect]
     Active Substance: ALISKIREN HEMIFUMARATE
     Indication: PRODUCT USED FOR UNKNOWN INDICATION
     Dosage: 150 MG, QD
     Route: 065
     Dates: start: 20100518, end: 20100910
  9. VITAMIN D [Concomitant]
     Active Substance: CHOLECALCIFEROL
     Indication: PRODUCT USED FOR UNKNOWN INDICATION
     Dosage: UNK
     Route: 065
  10. LYRICA [Concomitant]
     Active Substance: PREGABALIN
     Indication: PRODUCT USED FOR UNKNOWN INDICATION
     Dosage: UNK
     Route: 065

REACTIONS (84)
  - Immune thrombocytopenic purpura [Unknown]
  - Genital cancer male [Unknown]
  - Renal failure [Unknown]
  - Chronic kidney disease [Unknown]
  - Blood potassium increased [Unknown]
  - Renal impairment [Unknown]
  - Nocturia [Unknown]
  - Renal cyst [Unknown]
  - Hypercalcaemia [Unknown]
  - Orthostatic hypotension [Unknown]
  - Malignant urinary tract neoplasm [Unknown]
  - Anhedonia [Unknown]
  - Prostatic obstruction [Unknown]
  - Gynaecomastia [Unknown]
  - Aortic valve sclerosis [Unknown]
  - Organic erectile dysfunction [Unknown]
  - Prostatitis [Unknown]
  - Orchitis [Unknown]
  - Dysuria [Unknown]
  - Acute kidney injury [Unknown]
  - Laceration [Unknown]
  - Chronic gastritis [Unknown]
  - Migraine without aura [Unknown]
  - Gastrooesophageal reflux disease [Unknown]
  - Erythema [Unknown]
  - Peripheral swelling [Unknown]
  - Hypogonadism [Unknown]
  - Tricuspid valve incompetence [Unknown]
  - Blood creatinine decreased [Unknown]
  - Dehydration [Unknown]
  - Myalgia [Unknown]
  - Thrombosis [Unknown]
  - Cystitis [Unknown]
  - Hypercholesterolaemia [Unknown]
  - Weight decreased [Unknown]
  - Cerebrovascular accident [Unknown]
  - Calculus urinary [Unknown]
  - Pelvic discomfort [Unknown]
  - Mitral valve incompetence [Unknown]
  - Obesity [Unknown]
  - Chronic sinusitis [Unknown]
  - Hiatus hernia [Unknown]
  - Oedema peripheral [Unknown]
  - Nephrosclerosis [Unknown]
  - Obstructive uropathy [Unknown]
  - Sepsis [Unknown]
  - Deafness bilateral [Unknown]
  - Pain [Unknown]
  - Chest pain [Unknown]
  - Inflammatory bowel disease [Unknown]
  - Leukocytosis [Unknown]
  - Bladder outlet obstruction [Unknown]
  - Urinary tract infection [Unknown]
  - Duodenitis [Unknown]
  - Hypoparathyroidism [Unknown]
  - Syncope [Unknown]
  - Dyspnoea [Unknown]
  - Abdominal pain [Unknown]
  - Suicidal ideation [Unknown]
  - Kidney infection [Unknown]
  - Fatigue [Unknown]
  - Sexual dysfunction [Unknown]
  - Arthritis [Unknown]
  - Hepatic steatosis [Unknown]
  - Hypovolaemia [Unknown]
  - Hypothyroidism [Unknown]
  - Musculoskeletal pain [Unknown]
  - Myositis [Unknown]
  - Haemorrhoids [Unknown]
  - Heart rate decreased [Unknown]
  - Hyperhidrosis [Unknown]
  - Ventricular hypertrophy [Unknown]
  - Early satiety [Unknown]
  - Helicobacter infection [Unknown]
  - Back pain [Unknown]
  - Pituitary enlargement [Unknown]
  - Anxiety [Unknown]
  - Erectile dysfunction [Unknown]
  - Urinary retention [Unknown]
  - Sinus tachycardia [Unknown]
  - Costovertebral angle tenderness [Unknown]
  - Diaphragmatic hernia [Unknown]
  - Pituitary tumour benign [Unknown]
  - Hypotension [Unknown]

NARRATIVE: CASE EVENT DATE: 201009
